FAERS Safety Report 23320915 (Version 1)
Quarter: 2023Q4

REPORT INFORMATION
  Report Type: Spontaneous
  Country: CN (occurrence: CN)
  Receive Date: 20231220
  Receipt Date: 20231220
  Transmission Date: 20240110
  Serious: Yes (Hospitalization)
  Sender: FDA-Public Use
  Company Number: CN-Merck Healthcare KGaA-2023493920

PATIENT
  Age: 64 Year
  Sex: Male
  Weight: 60 kg

DRUGS (3)
  1. ERBITUX [Suspect]
     Active Substance: CETUXIMAB
     Indication: Gingival cancer
     Dosage: 600 MG, UNK
     Route: 041
     Dates: start: 20231117, end: 20231117
  2. DOCETAXEL [Suspect]
     Active Substance: DOCETAXEL\DOCETAXEL ANHYDROUS
     Indication: Gingival cancer
     Dosage: UNK UNK, UNKNOWN
     Route: 041
     Dates: start: 20231116, end: 20231117
  3. CISPLATIN [Suspect]
     Active Substance: CISPLATIN
     Indication: Gingival cancer
     Dosage: 30 MG, UNKNOWN
     Route: 041
     Dates: start: 20231116, end: 20231119

REACTIONS (2)
  - White blood cell count decreased [Recovering/Resolving]
  - Neutrophil count decreased [Recovering/Resolving]

NARRATIVE: CASE EVENT DATE: 20231126
